APPROVED DRUG PRODUCT: ADEFOVIR DIPIVOXIL
Active Ingredient: ADEFOVIR DIPIVOXIL
Strength: 10MG
Dosage Form/Route: TABLET;ORAL
Application: A205459 | Product #001 | TE Code: AB
Applicant: APOTEX INC
Approved: Jul 6, 2018 | RLD: No | RS: No | Type: RX